FAERS Safety Report 7422873-0 (Version None)
Quarter: 2011Q2

REPORT INFORMATION
  Report Type: 
  Country: None (occurrence: None)
  Receive Date: 20110419
  Receipt Date: 20110413
  Transmission Date: 20111010
  Serious: Yes (Life-Threatening, Hospitalization)
  Sender: FDA-Public Use
  Company Number: GB-PFIZER INC-2011081887

PATIENT
  Age: 52 Year
  Sex: Male

DRUGS (10)
  1. ETANERCEPT [Concomitant]
     Indication: PAIN
  2. LEVOTHYROXINE SODIUM [Concomitant]
  3. CELECOXIB [Suspect]
     Indication: ANKYLOSING SPONDYLITIS
     Dosage: 200 MG, 2X/DAY
     Route: 048
     Dates: start: 20110323, end: 20110326
  4. ACETYLSALICYLIC ACID [Concomitant]
  5. ADCAL-D3 [Concomitant]
  6. ATORVASTATIN [Concomitant]
  7. ETANERCEPT [Concomitant]
     Indication: ANKYLOSING SPONDYLITIS
  8. CO-DYDRAMOL [Concomitant]
  9. OMEPRAZOLE [Concomitant]
  10. RAMIPRIL [Concomitant]

REACTIONS (4)
  - MYOCARDIAL INFARCTION [None]
  - CORONARY ARTERY OCCLUSION [None]
  - ACUTE CORONARY SYNDROME [None]
  - CHEST PAIN [None]
